FAERS Safety Report 6767797-7 (Version None)
Quarter: 2010Q2

REPORT INFORMATION
  Report Type: 
  Country: None (occurrence: None)
  Receive Date: 20100614
  Receipt Date: 20100603
  Transmission Date: 20101027
  Serious: Yes (Hospitalization)
  Sender: FDA-Public Use
  Company Number: PHHY2010JP18088

PATIENT
  Age: 58 Year
  Sex: Female

DRUGS (7)
  1. FEMARA [Suspect]
     Indication: BREAST CANCER
     Dosage: 2.5 MG DAILY
     Route: 048
  2. NORVASC [Concomitant]
     Route: 048
  3. MARZULENE S [Concomitant]
     Route: 048
  4. GASTER D [Concomitant]
     Route: 048
  5. VITANEURIN [Concomitant]
     Route: 048
  6. TAKA-DIASTASE [Concomitant]
     Route: 048
  7. ANTIHYPERTENSIVE DRUGS [Concomitant]

REACTIONS (2)
  - HYPOKALAEMIA [None]
  - MYOPATHY [None]
